FAERS Safety Report 4639263-6 (Version None)
Quarter: 2005Q2

REPORT INFORMATION
  Report Type: 
  Country: None (occurrence: None)
  Receive Date: 20050418
  Receipt Date: 20050407
  Transmission Date: 20051028
  Serious: Yes (Hospitalization)
  Sender: FDA-Public Use
  Company Number: 2005056041

PATIENT
  Age: 69 Year
  Sex: Male
  Weight: 66.6788 kg

DRUGS (6)
  1. ALPRAZOLAM [Suspect]
     Indication: DEPRESSION
     Dosage: 1 MG (0.5 MG, 2 IN 1 D)
     Dates: start: 19950101
  2. DITROPAN [Suspect]
     Indication: HYPERTONIC BLADDER
     Dates: end: 20050401
  3. GINKGO BILOBA (GINKGO BILOBA) [Concomitant]
  4. HYPERICUM PERFORATUM (HYPERICUM PERFORATUM) [Concomitant]
  5. MULTIVITAMINS (ASCORBIC ACID, ERGOCALCIFEROL, FOLIC ACID, NICOTINAMIDE [Concomitant]
  6. DIAZEPAM [Concomitant]

REACTIONS (4)
  - BRONCHITIS [None]
  - DRUG INEFFECTIVE [None]
  - FEELING ABNORMAL [None]
  - LUNG NEOPLASM MALIGNANT [None]
